FAERS Safety Report 16134851 (Version 3)
Quarter: 2019Q2

REPORT INFORMATION
  Report Type: Spontaneous
  Country: US (occurrence: US)
  Receive Date: 20190329
  Receipt Date: 20190523
  Transmission Date: 20190711
  Serious: Yes (Other)
  Sender: FDA-Public Use
  Company Number: US-LEXICON PHARMACEUTICALS, INC-19-1606-00337

PATIENT
  Sex: Male

DRUGS (4)
  1. IMODIUM [Concomitant]
     Active Substance: LOPERAMIDE HYDROCHLORIDE
  2. SANDOSTATIN [Concomitant]
     Active Substance: OCTREOTIDE ACETATE
  3. POTASSIUM [Concomitant]
     Active Substance: POTASSIUM
  4. TELOTRISTAT ETHYL [Suspect]
     Active Substance: TELOTRISTAT ETHYL
     Indication: CARCINOID SYNDROME
     Route: 048
     Dates: start: 20190304

REACTIONS (9)
  - Fatigue [Unknown]
  - Diarrhoea [Unknown]
  - Lacrimation increased [Unknown]
  - Defaecation urgency [Not Recovered/Not Resolved]
  - Eye disorder [Unknown]
  - Anal incontinence [Not Recovered/Not Resolved]
  - Radiotherapy [Not Recovered/Not Resolved]
  - Depression [Unknown]
  - Flushing [Not Recovered/Not Resolved]

NARRATIVE: CASE EVENT DATE: 2019
